FAERS Safety Report 13099385 (Version 2)
Quarter: 2017Q2

REPORT INFORMATION
  Report Type: Spontaneous
  Country: FR (occurrence: FR)
  Receive Date: 20170109
  Receipt Date: 20170628
  Transmission Date: 20170830
  Serious: Yes (Life-Threatening, Hospitalization)
  Sender: FDA-Public Use
  Company Number: FR-SPECTRUM PHARMACEUTICALS, INC.-16-Z-FR-00412

PATIENT
  Age: 61 Year
  Sex: Male

DRUGS (7)
  1. CYTARABINE. [Suspect]
     Active Substance: CYTARABINE
     Indication: MANTLE CELL LYMPHOMA
     Dosage: 3680 MG, BID
     Route: 042
     Dates: start: 20160715, end: 201608
  2. CARBOPLATIN. [Suspect]
     Active Substance: CARBOPLATIN
     Indication: MANTLE CELL LYMPHOMA
     Dosage: 814 MG, UNK
     Route: 042
     Dates: start: 20160715, end: 20161017
  3. DEXAMETHASONE. [Suspect]
     Active Substance: DEXAMETHASONE
     Indication: MANTLE CELL LYMPHOMA
     Dosage: 40 MG, QD
     Route: 042
     Dates: start: 20160715, end: 20161017
  4. MABTHERA [Suspect]
     Active Substance: RITUXIMAB
     Indication: MANTLE CELL LYMPHOMA
     Dosage: 455 UNK, QD
     Route: 042
     Dates: start: 20161109, end: 20161116
  5. CYTARABINE. [Suspect]
     Active Substance: CYTARABINE
     Indication: MANTLE CELL LYMPHOMA
     Dosage: UNK
     Dates: start: 201609, end: 20161017
  6. ZEVALIN [Suspect]
     Active Substance: IBRITUMOMAB TIUXETAN
     Indication: MANTLE CELL LYMPHOMA
     Dosage: 807 MBQ, SINGLE
     Route: 042
     Dates: start: 20161116, end: 20161116
  7. MABTHERA [Suspect]
     Active Substance: RITUXIMAB
     Dosage: 690 UNK, QD
     Route: 042
     Dates: start: 20160715, end: 20161017

REACTIONS (2)
  - Off label use [Unknown]
  - Thrombotic microangiopathy [Recovering/Resolving]

NARRATIVE: CASE EVENT DATE: 20161123
